FAERS Safety Report 9731916 (Version 1)
Quarter: 2013Q4

REPORT INFORMATION
  Report Type: Spontaneous
  Country: US (occurrence: US)
  Receive Date: 20131205
  Receipt Date: 20131205
  Transmission Date: 20140711
  Serious: No
  Sender: FDA-Public Use
  Company Number: PHEH2013US024888

PATIENT
  Sex: Male

DRUGS (10)
  1. TASIGNA [Suspect]
     Indication: LEUKAEMIA
     Dosage: 200 MG, QD
  2. OMEPRAZOLE [Concomitant]
  3. HYDROCHLOROTHIAZIDE [Concomitant]
  4. MELOXICAM [Concomitant]
  5. VERAPAMIL [Concomitant]
  6. LANSOPRAZOLE [Concomitant]
  7. TERAZOSIN [Concomitant]
  8. ISOSORBIDE [Concomitant]
  9. MULTI-VIT [Concomitant]
  10. ASPIRIN [Concomitant]

REACTIONS (1)
  - Hernia [Unknown]
